FAERS Safety Report 9617776 (Version 1)
Quarter: 2013Q4

REPORT INFORMATION
  Report Type: Spontaneous
  Country: CA (occurrence: None)
  Receive Date: 20131009
  Receipt Date: 20131009
  Transmission Date: 20140711
  Serious: Yes (Other)
  Sender: FDA-Public Use
  Company Number: 2013US-73916

PATIENT
  Age: 69 Year
  Sex: Male

DRUGS (1)
  1. GABAPENTIN [Suspect]
     Indication: ESSENTIAL TREMOR
     Dosage: 300 MG TID ON DAY 3, INCREASED BY 300 EACH WEEK TO 600 MG TID AND THEN TAPERED , UNKNOWN

REACTIONS (2)
  - Myasthenia gravis [None]
  - Off label use [None]
